FAERS Safety Report 9197045 (Version 1)
Quarter: 2013Q1

REPORT INFORMATION
  Report Type: Spontaneous
  Country: US (occurrence: None)
  Receive Date: 20120709
  Receipt Date: 20120709
  Transmission Date: 20140127
  Serious: Yes (Hospitalization)
  Sender: FDA-Public Use
  Company Number: PHEH2012US002729

PATIENT
  Age: 78 Year
  Sex: Male

DRUGS (1)
  1. GLEEVEC [Suspect]
     Route: 048
     Dates: start: 20120112, end: 20120130

REACTIONS (6)
  - Cardiac failure congestive [None]
  - Atrial fibrillation [None]
  - Swelling [None]
  - Muscle spasms [None]
  - Diarrhoea [None]
  - Myalgia [None]
